FAERS Safety Report 22150176 (Version 1)
Quarter: 2023Q1

REPORT INFORMATION
  Report Type: Other
  Country: CA (occurrence: None)
  Receive Date: 20230329
  Receipt Date: 20230329
  Transmission Date: 20230418
  Serious: Yes (Hospitalization)
  Sender: FDA-Public Use
  Company Number: CA-ROCHE-3316000

PATIENT
  Sex: Female

DRUGS (4)
  1. OCREVUS [Suspect]
     Active Substance: OCRELIZUMAB
     Indication: Relapsing-remitting multiple sclerosis
     Dosage: MORE DOSAGE INFORMATION IS 300 MG AT DAY 0 AND 14, THEN 600 MG EVERY 6 MONTH
     Route: 042
     Dates: start: 20221022
  2. BACLOFEN [Concomitant]
     Active Substance: BACLOFEN
  3. PREGABALIN [Concomitant]
     Active Substance: PREGABALIN
  4. SOLIFENACIN [Concomitant]
     Active Substance: SOLIFENACIN

REACTIONS (1)
  - Localised infection [Unknown]
